FAERS Safety Report 4465109-5 (Version None)
Quarter: 2004Q3

REPORT INFORMATION
  Report Type: 
  Country: None (occurrence: None)
  Receive Date: 20040929
  Receipt Date: 20040914
  Transmission Date: 20050211
  Serious: Yes (Other)
  Sender: FDA-Public Use
  Company Number: USA040978269

PATIENT
  Age: 55 Year
  Sex: Female

DRUGS (5)
  1. EVISTA [Suspect]
     Indication: OSTEOPOROSIS
  2. FOSAMAX [Concomitant]
  3. ACTONEL [Concomitant]
  4. CORTICOSTEROID NOS [Concomitant]
  5. CALCIUM CARBONATE W/VITAMIN D NOS [Concomitant]

REACTIONS (3)
  - FOOT FRACTURE [None]
  - PATHOLOGICAL FRACTURE [None]
  - RIB FRACTURE [None]
